FAERS Safety Report 19091355 (Version 1)
Quarter: 2021Q2

REPORT INFORMATION
  Report Type: Spontaneous
  Country: JP (occurrence: JP)
  Receive Date: 20210405
  Receipt Date: 20210405
  Transmission Date: 20210717
  Serious: Yes (Other)
  Sender: FDA-Public Use
  Company Number: JP-ROCHE-2799747

PATIENT
  Age: 8 Year
  Sex: Female

DRUGS (116)
  1. HEPARINOID [Concomitant]
     Active Substance: CHONDROITIN SULFATE (BOVINE)
     Dosage: DOSAGE IS UNCERTAIN.
     Route: 061
     Dates: start: 20190212
  2. FENTANYL. [Concomitant]
     Active Substance: FENTANYL
     Dosage: 0.4,CONTINUOUS
     Route: 042
     Dates: start: 20190206, end: 20190206
  3. DOPAMINE [Concomitant]
     Active Substance: DOPAMINE HYDROCHLORIDE
     Indication: CYTOKINE RELEASE SYNDROME
     Dosage: 2.5,CONTINUOUS
     Route: 042
     Dates: start: 20190121, end: 20190121
  4. METHYLPREDNISOLONE. [Concomitant]
     Active Substance: METHYLPREDNISOLONE
     Route: 042
     Dates: start: 20190126, end: 20190126
  5. METHYLPREDNISOLONE. [Concomitant]
     Active Substance: METHYLPREDNISOLONE
     Route: 042
     Dates: start: 20190127, end: 20190128
  6. MICAFUNGIN SODIUM [Concomitant]
     Active Substance: MICAFUNGIN SODIUM
     Indication: PROPHYLAXIS
     Route: 042
     Dates: start: 20190108, end: 20190121
  7. METOCLOPRAMIDE. [Concomitant]
     Active Substance: METOCLOPRAMIDE
     Indication: NAUSEA
     Route: 042
     Dates: start: 20190116, end: 20190120
  8. OFLOXACIN. [Concomitant]
     Active Substance: OFLOXACIN
     Indication: PROPHYLAXIS
     Dosage: DOSAGE IS UNCERTAIN.
     Route: 061
  9. ATROPINE. [Concomitant]
     Active Substance: ATROPINE
     Route: 042
     Dates: start: 20191206, end: 20191206
  10. ROCURONIUM BROMIDE. [Concomitant]
     Active Substance: ROCURONIUM BROMIDE
     Indication: SEDATION
     Route: 042
     Dates: start: 20190120, end: 20190120
  11. FUROSEMIDE. [Concomitant]
     Active Substance: FUROSEMIDE
     Route: 042
     Dates: start: 20190204, end: 20190204
  12. MIDAZOLAM. [Concomitant]
     Active Substance: MIDAZOLAM
     Indication: SEDATION
     Dosage: 4,CONTINUOUS
     Route: 042
     Dates: start: 20190123, end: 20190125
  13. FENTANYL. [Concomitant]
     Active Substance: FENTANYL
     Indication: SEDATION
     Dosage: 0.5,CONTINUOUS
     Route: 042
     Dates: start: 20190120, end: 20190127
  14. MICAFUNGIN SODIUM [Concomitant]
     Active Substance: MICAFUNGIN SODIUM
     Route: 042
     Dates: start: 20190122, end: 20190201
  15. METOCLOPRAMIDE. [Concomitant]
     Active Substance: METOCLOPRAMIDE
     Route: 042
     Dates: start: 20190130, end: 20190206
  16. ATROPINE. [Concomitant]
     Active Substance: ATROPINE
     Indication: SEDATION
     Route: 042
     Dates: start: 20190213, end: 20190213
  17. ATROPINE. [Concomitant]
     Active Substance: ATROPINE
     Route: 042
     Dates: start: 20190313, end: 20190313
  18. ATROPINE. [Concomitant]
     Active Substance: ATROPINE
     Route: 042
     Dates: start: 20190712, end: 20190712
  19. ATROPINE. [Concomitant]
     Active Substance: ATROPINE
     Route: 042
     Dates: start: 20190913, end: 20190913
  20. ACICLOVIR [Concomitant]
     Active Substance: ACYCLOVIR
     Indication: PROPHYLAXIS
     Route: 042
     Dates: start: 20190203, end: 20190226
  21. PROPOFOL. [Concomitant]
     Active Substance: PROPOFOL
     Indication: SEDATION
     Route: 042
     Dates: start: 20190120, end: 20190120
  22. MIDAZOLAM. [Concomitant]
     Active Substance: MIDAZOLAM
     Route: 042
     Dates: start: 20190712, end: 20190712
  23. KETAMINE HYDROCHLORIDE. [Concomitant]
     Active Substance: KETAMINE HYDROCHLORIDE
     Route: 042
     Dates: start: 20190313, end: 20190313
  24. KETAMINE HYDROCHLORIDE. [Concomitant]
     Active Substance: KETAMINE HYDROCHLORIDE
     Route: 042
     Dates: start: 20190322, end: 20190322
  25. ACTEMRA [Suspect]
     Active Substance: TOCILIZUMAB
     Indication: CYTOKINE RELEASE SYNDROME
     Route: 041
     Dates: start: 20190120, end: 20190120
  26. ACTEMRA [Suspect]
     Active Substance: TOCILIZUMAB
     Route: 041
     Dates: start: 20190121, end: 20190121
  27. CTL 019 [Suspect]
     Active Substance: TISAGENLECLEUCEL
     Indication: ACUTE LYMPHOCYTIC LEUKAEMIA
     Dosage: DOSAGE IS UNCERTAIN.
     Route: 041
     Dates: start: 20190115
  28. TEICOPLANIN [Concomitant]
     Active Substance: TEICOPLANIN
     Route: 042
     Dates: start: 20190205, end: 20190212
  29. TEICOPLANIN [Concomitant]
     Active Substance: TEICOPLANIN
     Route: 042
     Dates: start: 20190216, end: 20190220
  30. ACETAMINOPHEN. [Concomitant]
     Active Substance: ACETAMINOPHEN
     Indication: MYALGIA
  31. MONOAMMONIUM GLYCYRRHIZINATE [Concomitant]
     Active Substance: AMMONIUM GLYCYRRHIZATE
     Route: 042
     Dates: start: 20190110, end: 20190112
  32. URSODEOXYCHOLIC ACID [Concomitant]
     Active Substance: URSODIOL
     Route: 048
     Dates: start: 20191004, end: 20191016
  33. FUROSEMIDE. [Concomitant]
     Active Substance: FUROSEMIDE
     Indication: CYTOKINE RELEASE SYNDROME
     Route: 042
     Dates: start: 20190125, end: 20190125
  34. MIDAZOLAM. [Concomitant]
     Active Substance: MIDAZOLAM
     Route: 042
     Dates: start: 20190809, end: 20190809
  35. MIDAZOLAM. [Concomitant]
     Active Substance: MIDAZOLAM
     Route: 042
     Dates: start: 20191206, end: 20191206
  36. KETAMINE HYDROCHLORIDE. [Concomitant]
     Active Substance: KETAMINE HYDROCHLORIDE
     Indication: SEDATION
     Route: 042
     Dates: start: 20190213, end: 20190213
  37. KETAMINE HYDROCHLORIDE. [Concomitant]
     Active Substance: KETAMINE HYDROCHLORIDE
     Route: 042
     Dates: start: 20191101, end: 20191101
  38. SODIUM GUALENATE HYDRATE [Concomitant]
     Active Substance: SODIUM GUALENATE MONOHYDRATE
     Indication: PROPHYLAXIS
     Dosage: DOSAGE IS UNCERTAIN.
     Route: 061
     Dates: start: 20190126
  39. METHYLPREDNISOLONE. [Concomitant]
     Active Substance: METHYLPREDNISOLONE
     Route: 042
     Dates: start: 20190122, end: 20190122
  40. SODIUM CHLORIDE. [Concomitant]
     Active Substance: SODIUM CHLORIDE
     Indication: HYPONATRAEMIA
     Dosage: 20,CONTINUOUS
     Route: 042
     Dates: start: 20190120, end: 20190122
  41. TEICOPLANIN [Concomitant]
     Active Substance: TEICOPLANIN
     Indication: FEBRILE NEUTROPENIA
     Route: 042
     Dates: start: 20190122, end: 20190123
  42. TEICOPLANIN [Concomitant]
     Active Substance: TEICOPLANIN
     Route: 042
     Dates: start: 20190204, end: 20190204
  43. MEROPENEM. [Concomitant]
     Active Substance: MEROPENEM
     Indication: CYTOKINE RELEASE SYNDROME
     Route: 042
     Dates: start: 20190118, end: 20190118
  44. URSODEOXYCHOLIC ACID [Concomitant]
     Active Substance: URSODIOL
     Route: 048
     Dates: start: 20190514, end: 20190529
  45. DAIPHEN [Concomitant]
     Active Substance: SULFAMETHOXAZOLE\TRIMETHOPRIM
     Dosage: DOSE INTERVAL UNCERTAINTY
     Route: 048
     Dates: start: 20190111, end: 20190119
  46. DAIPHEN [Concomitant]
     Active Substance: SULFAMETHOXAZOLE\TRIMETHOPRIM
     Dosage: DOSE INTERVAL UNCERTAINTY
     Route: 048
     Dates: start: 20190201, end: 20190726
  47. FUROSEMIDE. [Concomitant]
     Active Substance: FUROSEMIDE
     Route: 042
     Dates: start: 20190202, end: 20190202
  48. VASOPRESSIN. [Concomitant]
     Active Substance: VASOPRESSIN
     Indication: CYTOKINE RELEASE SYNDROME
     Dosage: 2,CONTINUOUS
     Route: 042
     Dates: start: 20190122, end: 20190125
  49. NORADRENALINE [Concomitant]
     Active Substance: NOREPINEPHRINE
     Indication: CYTOKINE RELEASE SYNDROME
     Dosage: 8,CONTINUOUS
     Route: 042
     Dates: start: 20190121, end: 20190128
  50. MIDAZOLAM. [Concomitant]
     Active Substance: MIDAZOLAM
     Dosage: 4,CONTINUOUS
     Route: 042
     Dates: start: 20190128, end: 20190129
  51. MIDAZOLAM. [Concomitant]
     Active Substance: MIDAZOLAM
     Dosage: 1.5,CONTINUOUS
     Route: 042
     Dates: start: 20190201, end: 20190203
  52. MIDAZOLAM. [Concomitant]
     Active Substance: MIDAZOLAM
     Route: 042
     Dates: start: 20190213, end: 20190213
  53. ACTEMRA [Suspect]
     Active Substance: TOCILIZUMAB
     Route: 041
     Dates: start: 20190122, end: 20190122
  54. ACETAMINOPHEN. [Concomitant]
     Active Substance: ACETAMINOPHEN
     Indication: PYREXIA
  55. MONOAMMONIUM GLYCYRRHIZINATE [Concomitant]
     Active Substance: AMMONIUM GLYCYRRHIZATE
     Route: 042
     Dates: start: 20190109, end: 20190109
  56. VASOPRESSIN. [Concomitant]
     Active Substance: VASOPRESSIN
     Dosage: 1,CONTINUOUS
     Route: 042
     Dates: start: 20190126, end: 20190126
  57. MIDAZOLAM. [Concomitant]
     Active Substance: MIDAZOLAM
     Dosage: 3,CONTINUOUS
     Route: 042
     Dates: start: 20190126, end: 20190127
  58. MIDAZOLAM. [Concomitant]
     Active Substance: MIDAZOLAM
     Route: 042
     Dates: start: 20190322, end: 20190322
  59. MIDAZOLAM. [Concomitant]
     Active Substance: MIDAZOLAM
     Route: 042
     Dates: start: 20190613, end: 20190613
  60. KETAMINE HYDROCHLORIDE. [Concomitant]
     Active Substance: KETAMINE HYDROCHLORIDE
     Route: 042
     Dates: start: 20190514, end: 20190514
  61. KETAMINE HYDROCHLORIDE. [Concomitant]
     Active Substance: KETAMINE HYDROCHLORIDE
     Route: 042
     Dates: start: 20190913, end: 20190913
  62. KETAMINE HYDROCHLORIDE. [Concomitant]
     Active Substance: KETAMINE HYDROCHLORIDE
     Route: 042
     Dates: start: 20200117, end: 20200117
  63. NEUTROGIN [Concomitant]
     Active Substance: LENOGRASTIM
     Indication: WHITE BLOOD CELL COUNT DECREASED
     Dates: start: 201811
  64. DEXMEDETOMIDINE. [Concomitant]
     Active Substance: DEXMEDETOMIDINE
     Indication: SEDATION
     Dosage: 5.5,CONTINUOUS
     Route: 042
     Dates: start: 20190121, end: 20190208
  65. FENTANYL. [Concomitant]
     Active Substance: FENTANYL
     Dosage: 0.6,CONTINUOUS
     Route: 042
     Dates: start: 20190128, end: 20190205
  66. METHYLPREDNISOLONE. [Concomitant]
     Active Substance: METHYLPREDNISOLONE
     Route: 042
     Dates: start: 20190123, end: 20190123
  67. METHYLPREDNISOLONE. [Concomitant]
     Active Substance: METHYLPREDNISOLONE
     Route: 042
     Dates: start: 20190130, end: 20190130
  68. METHYLPREDNISOLONE. [Concomitant]
     Active Substance: METHYLPREDNISOLONE
     Route: 042
     Dates: start: 20190131, end: 20190131
  69. TEICOPLANIN [Concomitant]
     Active Substance: TEICOPLANIN
     Route: 042
     Dates: start: 20190201, end: 20190203
  70. TEICOPLANIN [Concomitant]
     Active Substance: TEICOPLANIN
     Route: 042
     Dates: start: 20190213, end: 20190215
  71. MEROPENEM. [Concomitant]
     Active Substance: MEROPENEM
     Indication: FEBRILE NEUTROPENIA
     Route: 042
     Dates: start: 20190119, end: 20190222
  72. MONOAMMONIUM GLYCYRRHIZINATE [Concomitant]
     Active Substance: AMMONIUM GLYCYRRHIZATE
     Route: 042
     Dates: start: 20190113, end: 20190113
  73. MONOAMMONIUM GLYCYRRHIZINATE [Concomitant]
     Active Substance: AMMONIUM GLYCYRRHIZATE
     Route: 042
     Dates: start: 20190204, end: 20190302
  74. URSODEOXYCHOLIC ACID [Concomitant]
     Active Substance: URSODIOL
     Indication: HEPATOTOXICITY
     Route: 048
     Dates: start: 20190128, end: 20190221
  75. FEBUXOSTAT. [Concomitant]
     Active Substance: FEBUXOSTAT
     Indication: PROPHYLAXIS
     Route: 048
     Dates: start: 20190118, end: 20190131
  76. ATROPINE. [Concomitant]
     Active Substance: ATROPINE
     Route: 042
     Dates: start: 20191101, end: 20191101
  77. HYALURONATE NA [Concomitant]
     Active Substance: HYALURONATE SODIUM
     Indication: DRY EYE
     Dosage: DOSAGE IS UNCERTAIN.
     Route: 061
     Dates: start: 20190323, end: 20190330
  78. MIDAZOLAM. [Concomitant]
     Active Substance: MIDAZOLAM
     Route: 042
     Dates: start: 20191101, end: 20191101
  79. MIDAZOLAM. [Concomitant]
     Active Substance: MIDAZOLAM
     Route: 042
     Dates: start: 20200117, end: 20200117
  80. METHYLPREDNISOLONE. [Concomitant]
     Active Substance: METHYLPREDNISOLONE
     Route: 042
     Dates: start: 20190129, end: 20190129
  81. MICAFUNGIN SODIUM [Concomitant]
     Active Substance: MICAFUNGIN SODIUM
     Route: 042
     Dates: start: 20190202, end: 20190214
  82. METOCLOPRAMIDE. [Concomitant]
     Active Substance: METOCLOPRAMIDE
     Route: 042
     Dates: start: 20190207, end: 20190207
  83. MONOAMMONIUM GLYCYRRHIZINATE [Concomitant]
     Active Substance: AMMONIUM GLYCYRRHIZATE
     Route: 042
     Dates: start: 20190113, end: 20190113
  84. GLYCYRON [Concomitant]
     Indication: HEPATOTOXICITY
     Route: 048
     Dates: start: 20190303, end: 20190529
  85. DAIPHEN [Concomitant]
     Active Substance: SULFAMETHOXAZOLE\TRIMETHOPRIM
     Indication: PROPHYLAXIS
     Route: 048
     Dates: start: 20190120, end: 20190131
  86. ATROPINE. [Concomitant]
     Active Substance: ATROPINE
     Route: 042
     Dates: start: 20190322, end: 20190322
  87. ATROPINE. [Concomitant]
     Active Substance: ATROPINE
     Route: 042
     Dates: start: 20190416, end: 20190416
  88. ATROPINE. [Concomitant]
     Active Substance: ATROPINE
     Route: 042
     Dates: start: 20190514, end: 20190514
  89. ATROPINE. [Concomitant]
     Active Substance: ATROPINE
     Route: 042
     Dates: start: 20190613, end: 20190613
  90. FUROSEMIDE. [Concomitant]
     Active Substance: FUROSEMIDE
     Route: 042
     Dates: start: 20190126, end: 20190201
  91. MIDAZOLAM. [Concomitant]
     Active Substance: MIDAZOLAM
     Dosage: 3,CONTINUOUS
     Route: 042
     Dates: start: 20190130, end: 20190130
  92. MIDAZOLAM. [Concomitant]
     Active Substance: MIDAZOLAM
     Dosage: 2,CONTINUOUS
     Route: 042
     Dates: start: 20190131, end: 20190131
  93. MIDAZOLAM. [Concomitant]
     Active Substance: MIDAZOLAM
     Dosage: 0.5,CONTINUOUS
     Route: 042
     Dates: start: 20190205, end: 20190205
  94. MIDAZOLAM. [Concomitant]
     Active Substance: MIDAZOLAM
     Route: 042
     Dates: start: 20190416, end: 20190416
  95. MIDAZOLAM. [Concomitant]
     Active Substance: MIDAZOLAM
     Route: 042
     Dates: start: 20190514, end: 20190514
  96. KETAMINE HYDROCHLORIDE. [Concomitant]
     Active Substance: KETAMINE HYDROCHLORIDE
     Route: 042
     Dates: start: 20190416, end: 20190416
  97. KETAMINE HYDROCHLORIDE. [Concomitant]
     Active Substance: KETAMINE HYDROCHLORIDE
     Route: 042
     Dates: start: 20190613, end: 20190613
  98. KETAMINE HYDROCHLORIDE. [Concomitant]
     Active Substance: KETAMINE HYDROCHLORIDE
     Route: 042
     Dates: start: 20190712, end: 20190712
  99. KETAMINE HYDROCHLORIDE. [Concomitant]
     Active Substance: KETAMINE HYDROCHLORIDE
     Route: 042
     Dates: start: 20190809, end: 20190809
  100. KETAMINE HYDROCHLORIDE. [Concomitant]
     Active Substance: KETAMINE HYDROCHLORIDE
     Route: 042
     Dates: start: 20191206, end: 20191206
  101. HEPARINOID [Concomitant]
     Active Substance: CHONDROITIN SULFATE (BOVINE)
     Indication: DRY SKIN
     Dosage: DOSAGE IS UNCERTAIN.
     Route: 061
     Dates: start: 20190107
  102. FENTANYL. [Concomitant]
     Active Substance: FENTANYL
     Dosage: 0.2,CONTINUOUS
     Route: 042
     Dates: start: 20190207, end: 20190208
  103. METHYLPREDNISOLONE. [Concomitant]
     Active Substance: METHYLPREDNISOLONE
     Indication: CYTOKINE RELEASE SYNDROME
     Route: 042
     Dates: start: 20190121, end: 20190121
  104. METHYLPREDNISOLONE. [Concomitant]
     Active Substance: METHYLPREDNISOLONE
     Route: 042
     Dates: start: 20190124, end: 20190125
  105. TEICOPLANIN [Concomitant]
     Active Substance: TEICOPLANIN
     Indication: CYTOKINE RELEASE SYNDROME
     Route: 042
     Dates: start: 20190120, end: 20190121
  106. TEICOPLANIN [Concomitant]
     Active Substance: TEICOPLANIN
     Route: 042
     Dates: start: 20190124, end: 20190127
  107. TEICOPLANIN [Concomitant]
     Active Substance: TEICOPLANIN
     Route: 042
     Dates: start: 20190128, end: 20190131
  108. ACETAMINOPHEN. [Concomitant]
     Active Substance: ACETAMINOPHEN
     Indication: CYTOKINE RELEASE SYNDROME
     Route: 042
     Dates: start: 20190108, end: 20190221
  109. MONOAMMONIUM GLYCYRRHIZINATE [Concomitant]
     Active Substance: AMMONIUM GLYCYRRHIZATE
     Indication: HEPATOTOXICITY
     Route: 042
     Dates: start: 20190108, end: 20190108
  110. ATROPINE. [Concomitant]
     Active Substance: ATROPINE
     Route: 042
     Dates: start: 20190809, end: 20190809
  111. ATROPINE. [Concomitant]
     Active Substance: ATROPINE
     Route: 042
     Dates: start: 20200117, end: 20200117
  112. FUROSEMIDE. [Concomitant]
     Active Substance: FUROSEMIDE
     Route: 042
     Dates: start: 20190203, end: 20190203
  113. MIDAZOLAM. [Concomitant]
     Active Substance: MIDAZOLAM
     Dosage: 1,CONTINUOUS
     Route: 042
     Dates: start: 20190204, end: 20190204
  114. MIDAZOLAM. [Concomitant]
     Active Substance: MIDAZOLAM
     Route: 042
     Dates: start: 20190313, end: 20190313
  115. MIDAZOLAM. [Concomitant]
     Active Substance: MIDAZOLAM
     Route: 042
     Dates: start: 20190913, end: 20190913
  116. NEUTROGIN [Concomitant]
     Active Substance: LENOGRASTIM
     Indication: NEUTROPHIL COUNT DECREASED
     Dates: start: 201811

REACTIONS (8)
  - Hypoalbuminaemia [Recovered/Resolved]
  - Disseminated intravascular coagulation [Recovered/Resolved]
  - Blood creatine phosphokinase increased [Recovered/Resolved]
  - Haematuria [Recovered/Resolved]
  - Upper respiratory tract infection [Recovering/Resolving]
  - Bronchopulmonary aspergillosis [Not Recovered/Not Resolved]
  - Paronychia [Not Recovered/Not Resolved]
  - Pharyngitis [Recovered/Resolved]

NARRATIVE: CASE EVENT DATE: 20190121
